FAERS Safety Report 4726719-0 (Version None)
Quarter: 2005Q3

REPORT INFORMATION
  Report Type: 
  Country: None (occurrence: None)
  Receive Date: 20050725
  Receipt Date: 20050516
  Transmission Date: 20060218
  Serious: No
  Sender: FDA-Public Use
  Company Number: USA050189525

PATIENT
  Age: 6 Year
  Sex: Male
  Weight: 23 kg

DRUGS (4)
  1. STRATTERA [Suspect]
     Indication: ATTENTION DEFICIT/HYPERACTIVITY DISORDER
     Dosage: 18 MG DAY
     Dates: start: 20041101
  2. ZYRTEC [Concomitant]
  3. ALBUTEROL [Concomitant]
  4. PULMICORT [Concomitant]

REACTIONS (6)
  - ABNORMAL BEHAVIOUR [None]
  - ANGER [None]
  - DECREASED APPETITE [None]
  - DRUG INEFFECTIVE [None]
  - MOOD SWINGS [None]
  - OPPOSITIONAL DEFIANT DISORDER [None]
